FAERS Safety Report 13758249 (Version 1)
Quarter: 2017Q3

REPORT INFORMATION
  Report Type: Spontaneous
  Country: US (occurrence: US)
  Receive Date: 20170715
  Receipt Date: 20170715
  Transmission Date: 20171127
  Serious: No
  Sender: FDA-Public Use
  Company Number: None

PATIENT
  Age: 62 Year
  Sex: Female
  Weight: 72 kg

DRUGS (8)
  1. VITAMIN D3 [Concomitant]
     Active Substance: CHOLECALCIFEROL
  2. MAG [Concomitant]
  3. BIOSIL [Concomitant]
  4. MUILTY VIT [Concomitant]
  5. COQ10 [Concomitant]
     Active Substance: UBIDECARENONE
  6. PROBIOTIC [Concomitant]
     Active Substance: PROBIOTICS NOS
  7. STRONTIUM [Concomitant]
     Active Substance: STRONTIUM
  8. NABUMETONE 500 MG [Suspect]
     Active Substance: NABUMETONE
     Indication: PAIN IN EXTREMITY
     Dosage: ?          OTHER STRENGTH:MG;QUANTITY:2 TABLET(S);?DAILY ORAL
     Route: 048
     Dates: start: 20170704, end: 20170706

REACTIONS (3)
  - Anger [None]
  - Anxiety [None]
  - Drug ineffective [None]

NARRATIVE: CASE EVENT DATE: 20170710
